APPROVED DRUG PRODUCT: VALCYTE
Active Ingredient: VALGANCICLOVIR HYDROCHLORIDE
Strength: EQ 450MG BASE
Dosage Form/Route: TABLET;ORAL
Application: N021304 | Product #001 | TE Code: AB
Applicant: CHEPLAPHARM ARZNEIMITTEL GMBH
Approved: Mar 29, 2001 | RLD: Yes | RS: Yes | Type: RX